FAERS Safety Report 8380384-2 (Version None)
Quarter: 2012Q2

REPORT INFORMATION
  Report Type: 
  Country: None (occurrence: None)
  Receive Date: 20120523
  Receipt Date: 20120514
  Transmission Date: 20120825
  Serious: Yes (Hospitalization)
  Sender: FDA-Public Use
  Company Number: BE-ASTRAZENECA-2012SE30880

PATIENT
  Age: 91 Year
  Sex: Female

DRUGS (13)
  1. DURAGESIC-100 [Concomitant]
  2. LIORESAL [Concomitant]
     Dosage: 3X HALF TABLET
  3. SEROQUEL [Suspect]
     Dosage: 2 X HALF TABLET DAILY
     Route: 048
  4. AMLODIPINE BESYLATE [Concomitant]
  5. PERINDOPRIL ERBUMINE [Concomitant]
  6. LIORESAL [Concomitant]
  7. LORAMET [Concomitant]
  8. PRADAXA [Concomitant]
     Indication: CEREBROVASCULAR ACCIDENT
  9. POLYETHYLENE GLYCOL [Concomitant]
  10. SEROQUEL [Suspect]
     Indication: AGGRESSION
     Dosage: HALF-HALF- ONE TABLET DAILY
     Route: 048
     Dates: start: 20120101
  11. BISOPROLOL FUMARATE [Concomitant]
  12. OMEPRAZOLE [Concomitant]
  13. ACETAMINOPHEN [Concomitant]

REACTIONS (4)
  - INTENTIONAL DRUG MISUSE [None]
  - DEPRESSED LEVEL OF CONSCIOUSNESS [None]
  - SOMNOLENCE [None]
  - BRADYCARDIA [None]
